FAERS Safety Report 18379041 (Version 5)
Quarter: 2025Q2

REPORT INFORMATION
  Report Type: Spontaneous
  Country: IT (occurrence: IT)
  Receive Date: 20201014
  Receipt Date: 20250627
  Transmission Date: 20250716
  Serious: Yes (Hospitalization, Other)
  Sender: AUROBINDO
  Company Number: IT-TEO-20201816

PATIENT
  Age: 81 Year
  Sex: Male

DRUGS (11)
  1. RISPERIDONE [Interacting]
     Active Substance: RISPERIDONE
     Indication: Psychotic disorder
     Dosage: 1 MILLIGRAM, ONCE A DAY (BEDTIME)
     Route: 065
  2. BISOPROLOL FUMARATE [Interacting]
     Active Substance: BISOPROLOL FUMARATE
     Indication: Atrial fibrillation
     Dosage: 1.25 MILLIGRAM, EVERY OTHER DAY
     Route: 065
  3. ELIQUIS [Interacting]
     Active Substance: APIXABAN
     Indication: Atrial fibrillation
     Dosage: 5 MILLIGRAM, EVERY OTHER DAY
     Route: 065
  4. EN [Interacting]
     Active Substance: DELORAZEPAM
     Indication: Anxiety
     Dosage: 10 GTT DROPS, ONCE A DAY
     Route: 065
  5. CHLORPROMAZINE [Interacting]
     Active Substance: CHLORPROMAZINE
     Indication: Psychotic disorder
     Dosage: 25 MILLIGRAM, ONCE A DAY
     Route: 065
  6. REPAGLINIDE [Interacting]
     Active Substance: REPAGLINIDE
     Indication: Diabetes mellitus
     Dosage: 0.5 MILLIGRAM, TWO TIMES A DAY
     Route: 065
  7. PANTOPAN [Interacting]
     Active Substance: PANTOPRAZOLE SODIUM
     Indication: Prophylaxis
     Route: 065
  8. SINEMET [Interacting]
     Active Substance: CARBIDOPA\LEVODOPA
     Indication: Parkinsonism
     Dosage: 25 MILLIGRAM, ONCE A DAY
     Route: 048
  9. SPIRIVA [Interacting]
     Active Substance: TIOTROPIUM BROMIDE MONOHYDRATE
     Indication: Chronic obstructive pulmonary disease
     Dosage: 18 MICROGRAM, ONCE A DAY
     Route: 065
  10. ATORVASTATIN [Interacting]
     Active Substance: ATORVASTATIN
     Indication: Hypercholesterolaemia
     Dosage: 20 MILLIGRAM, ONCE A DAY
     Route: 065
  11. RAMIPRIL [Interacting]
     Active Substance: RAMIPRIL
     Indication: Hypertension
     Dosage: 25 MILLIGRAM, ONCE A DAY
     Route: 065

REACTIONS (10)
  - Dementia [Recovering/Resolving]
  - Cognitive disorder [Recovering/Resolving]
  - Cerebral atrophy [Unknown]
  - Hypertonia [Recovering/Resolving]
  - Cardiac murmur [Unknown]
  - Depressed mood [Recovering/Resolving]
  - Off label use [Unknown]
  - Product prescribing issue [Unknown]
  - Drug interaction [Unknown]
  - Labelled drug-drug interaction medication error [Unknown]
